FAERS Safety Report 15076348 (Version 3)
Quarter: 2018Q3

REPORT INFORMATION
  Report Type: Spontaneous
  Country: US (occurrence: US)
  Receive Date: 20180627
  Receipt Date: 20180820
  Transmission Date: 20181010
  Serious: Yes (Other)
  Sender: FDA-Public Use
  Company Number: US-BAYER-2018-121282

PATIENT
  Age: 46 Year
  Sex: Female
  Weight: 123 kg

DRUGS (1)
  1. MIRENA [Suspect]
     Active Substance: LEVONORGESTREL
     Indication: CONTRACEPTION
     Dosage: 20 MCG/24HR, CONT
     Route: 015
     Dates: start: 20110613, end: 20180625

REACTIONS (4)
  - Device use issue [None]
  - Embedded device [Recovering/Resolving]
  - Device breakage [Recovering/Resolving]
  - Device difficult to use [Recovering/Resolving]

NARRATIVE: CASE EVENT DATE: 20180625
